FAERS Safety Report 13963179 (Version 2)
Quarter: 2017Q3

REPORT INFORMATION
  Report Type: Spontaneous
  Country: TW (occurrence: TW)
  Receive Date: 20170913
  Receipt Date: 20170926
  Transmission Date: 20171128
  Serious: Yes (Other)
  Sender: FDA-Public Use
  Company Number: TW-ASTRAZENECA-2017SE91848

PATIENT
  Sex: Female

DRUGS (2)
  1. TAGRISSO [Suspect]
     Active Substance: OSIMERTINIB
     Route: 048
  2. TAGRISSO [Suspect]
     Active Substance: OSIMERTINIB
     Dosage: 80
     Route: 048
     Dates: start: 201701

REACTIONS (3)
  - Metastases to neck [Unknown]
  - Lymph node pain [Recovering/Resolving]
  - Lymph node pain [Unknown]
